FAERS Safety Report 6971702-8 (Version None)
Quarter: 2010Q3

REPORT INFORMATION
  Report Type: 
  Country: None (occurrence: None)
  Receive Date: 20100908
  Receipt Date: 20091023
  Transmission Date: 20110219
  Serious: No
  Sender: FDA-Public Use
  Company Number: US-PFIZER INC-2009288841

PATIENT
  Sex: Female

DRUGS (3)
  1. NARDIL [Suspect]
  2. GEODON [Suspect]
     Dosage: UNK
  3. LAMICTAL [Suspect]
     Dosage: UNK

REACTIONS (5)
  - AGGRESSION [None]
  - DISTURBANCE IN ATTENTION [None]
  - PARANOIA [None]
  - PRURITUS [None]
  - WEIGHT INCREASED [None]
